FAERS Safety Report 8211318-9 (Version None)
Quarter: 2012Q1

REPORT INFORMATION
  Report Type: 
  Country: None (occurrence: None)
  Receive Date: 20120315
  Receipt Date: 20120312
  Transmission Date: 20120608
  Serious: No
  Sender: FDA-Public Use
  Company Number: US-PFIZER INC-2012030952

PATIENT
  Sex: Female
  Weight: 74.83 kg

DRUGS (1)
  1. ATORVASTATIN CALCIUM [Suspect]
     Indication: BLOOD CHOLESTEROL INCREASED
     Dosage: UNK, DAILY AT NIGHT
     Route: 048
     Dates: start: 20120101, end: 20120201

REACTIONS (4)
  - HYPOTENSION [None]
  - ABDOMINAL DISCOMFORT [None]
  - DIZZINESS [None]
  - ERUCTATION [None]
